FAERS Safety Report 5869146-5 (Version None)
Quarter: 2008Q3

REPORT INFORMATION
  Report Type: 
  Country: None (occurrence: None)
  Receive Date: 20080903
  Receipt Date: 20080829
  Transmission Date: 20090109
  Serious: Yes (Hospitalization)
  Sender: FDA-Public Use
  Company Number: US-BRISTOL-MYERS SQUIBB COMPANY-14319065

PATIENT
  Age: 84 Year
  Sex: Male
  Weight: 91 kg

DRUGS (3)
  1. CETUXIMAB [Suspect]
     Indication: TONSIL CANCER
     Dosage: INITIATED ON 4AUG08.
     Route: 042
     Dates: start: 20080825, end: 20080825
  2. CARBOPLATIN [Suspect]
     Indication: TONSIL CANCER
     Dosage: 1 DF=AUC 6.
     Route: 042
     Dates: start: 20080804
  3. TAXOL [Suspect]
     Indication: TONSIL CANCER
     Dosage: INITIATED ON 4AUG08,11AUG08.
     Route: 042
     Dates: start: 20080818, end: 20080818

REACTIONS (2)
  - PULMONARY OEDEMA [None]
  - PYREXIA [None]
